FAERS Safety Report 11323018 (Version 1)
Quarter: 2015Q3

REPORT INFORMATION
  Report Type: Spontaneous
  Country: US (occurrence: None)
  Receive Date: 20150729
  Receipt Date: 20150729
  Transmission Date: 20151125
  Serious: No
  Sender: FDA-Public Use
  Company Number: None

PATIENT
  Age: 12 Year
  Sex: Male
  Weight: 74.84 kg

DRUGS (2)
  1. KAPVAY GENERIC [Suspect]
     Active Substance: CLONIDINE HYDROCHLORIDE
     Indication: TIC
     Dates: start: 20121120
  2. VYVANSE [Suspect]
     Active Substance: LISDEXAMFETAMINE DIMESYLATE
     Indication: TIC
     Dates: start: 20121120

REACTIONS (3)
  - Tic [None]
  - Product substitution issue [None]
  - Condition aggravated [None]

NARRATIVE: CASE EVENT DATE: 20121120
